FAERS Safety Report 5862131-9 (Version None)
Quarter: 2008Q3

REPORT INFORMATION
  Report Type: 
  Country: None (occurrence: None)
  Receive Date: 20080828
  Receipt Date: 20071001
  Transmission Date: 20090109
  Serious: No
  Sender: FDA-Public Use
  Company Number: A0685624A

PATIENT
  Age: 64 Year
  Sex: Female
  Weight: 42.7 kg

DRUGS (4)
  1. ACYCLOVIR [Suspect]
     Indication: GENITAL HERPES
     Dosage: 400MG TWICE PER DAY
     Route: 048
     Dates: start: 20060101, end: 20070101
  2. TYLENOL W/ CODEINE [Concomitant]
     Indication: MALABSORPTION
     Dosage: 1TAB FOUR TIMES PER DAY
     Route: 048
  3. ACTONEL [Concomitant]
     Indication: OSTEOPOROSIS
  4. VAGIFEM [Concomitant]

REACTIONS (1)
  - BLOOD TRIGLYCERIDES INCREASED [None]
